FAERS Safety Report 10510986 (Version 1)
Quarter: 2014Q4

REPORT INFORMATION
  Report Type: Spontaneous
  Country: US (occurrence: None)
  Receive Date: 20141009
  Receipt Date: 20141009
  Transmission Date: 20150528
  Serious: No
  Sender: FDA-Public Use
  Company Number: None

PATIENT
  Sex: Male

DRUGS (1)
  1. ENBREL [Suspect]
     Active Substance: ETANERCEPT
     Indication: ILL-DEFINED DISORDER
     Dosage: 50MG  ONCE PER WEEK  SUBCUTANEOUS
     Route: 058
     Dates: start: 20140214

REACTIONS (3)
  - Injection site urticaria [None]
  - Feeling abnormal [None]
  - Injection site pruritus [None]
